FAERS Safety Report 18404411 (Version 4)
Quarter: 2021Q4

REPORT INFORMATION
  Report Type: Report from Study
  Country: KR (occurrence: KR)
  Receive Date: 20201020
  Receipt Date: 20211125
  Transmission Date: 20220303
  Serious: Yes (Hospitalization, Other)
  Sender: FDA-Public Use
  Company Number: KR-TAKEDA-2020TUS043191

PATIENT
  Age: 49 Year
  Sex: Male
  Weight: 65 kg

DRUGS (15)
  1. BRIGATINIB [Suspect]
     Active Substance: BRIGATINIB
     Indication: Non-small cell lung cancer
     Dosage: 90 MILLIGRAM, QD
     Route: 048
     Dates: start: 20200618, end: 20200624
  2. BRIGATINIB [Suspect]
     Active Substance: BRIGATINIB
     Dosage: 180 MILLIGRAM, QD
     Route: 048
     Dates: start: 20200625
  3. NEXIUM [Concomitant]
     Active Substance: ESOMEPRAZOLE MAGNESIUM
     Indication: Gastritis
     Dosage: 20 MILLIGRAM, QD
     Route: 048
     Dates: start: 20200608
  4. CODAEWON FORTE [Concomitant]
     Indication: Prophylaxis
     Dosage: 20 MILLILITER, TID
     Route: 048
     Dates: start: 20200608
  5. SURFOLASE [Concomitant]
     Indication: Prophylaxis
     Dosage: UNK UNK, BID
     Route: 048
     Dates: start: 20200608
  6. GLUTATHIONE [Concomitant]
     Active Substance: GLUTATHIONE
     Indication: Prophylaxis
     Dosage: UNK UNK, BID
     Route: 048
     Dates: start: 20200618
  7. LAFUTIDINE [Concomitant]
     Active Substance: LAFUTIDINE
     Indication: Gastritis
     Dosage: UNK UNK, BID
     Route: 048
     Dates: start: 20200608
  8. Godex [Concomitant]
     Indication: Prophylaxis
     Dosage: UNK UNK, BID
     Route: 048
     Dates: start: 20200618
  9. ALLELOCK [Concomitant]
     Active Substance: OLOPATADINE HYDROCHLORIDE
     Indication: Prophylaxis
     Dosage: 5 MILLIGRAM, BID
     Route: 048
     Dates: start: 20200618
  10. URSODIOL [Concomitant]
     Active Substance: URSODIOL
     Indication: Prophylaxis
     Dosage: UNK UNK, TID
     Route: 048
     Dates: start: 20200618
  11. Flomox [Concomitant]
     Indication: Prophylaxis
     Dosage: UNK UNK, TID
     Route: 048
     Dates: start: 20200610
  12. LEVODROPROPIZINE [Concomitant]
     Active Substance: LEVODROPROPIZINE
     Indication: Prophylaxis
     Dosage: UNK UNK, TID
     Route: 048
     Dates: start: 20200608
  13. MEDILAC DS [Concomitant]
     Indication: Prophylaxis against diarrhoea
     Dosage: UNK UNK, TID
     Route: 048
     Dates: start: 20200618
  14. TRANSAMIN [Concomitant]
     Active Substance: TRANEXAMIC ACID
     Indication: Prophylaxis
     Dosage: UNK UNK, TID
     Route: 048
     Dates: start: 20200610, end: 20200624
  15. CIA [Concomitant]
     Indication: Pain prophylaxis
     Dosage: UNK UNK, TID
     Route: 048
     Dates: start: 20200610, end: 20200624

REACTIONS (1)
  - Deep vein thrombosis [Not Recovered/Not Resolved]

NARRATIVE: CASE EVENT DATE: 20200702
